FAERS Safety Report 18215683 (Version 1)
Quarter: 2020Q3

REPORT INFORMATION
  Report Type: Spontaneous
  Country: CN (occurrence: CN)
  Receive Date: 20200831
  Receipt Date: 20200831
  Transmission Date: 20201103
  Serious: Yes (Other)
  Sender: FDA-Public Use
  Company Number: CN-BAXTER-2020BAX017672

PATIENT
  Age: 34 Year
  Sex: Female
  Weight: 57 kg

DRUGS (5)
  1. ENDOXAN [Suspect]
     Active Substance: CYCLOPHOSPHAMIDE
     Indication: BREAST CANCER FEMALE
     Dosage: FIRST CHEMOTHERAPY, ENDOXAN 950 MG + NS 50 ML
     Route: 042
     Dates: start: 20200703, end: 20200703
  2. 0.9% SODIUM CHLORIDE INJECTION [Suspect]
     Active Substance: SODIUM CHLORIDE
     Indication: MEDICATION DILUTION
     Dosage: FIRST CHEMOTHERAPY, ENDOXAN 950 MG + NS 50 ML
     Route: 042
     Dates: start: 20200703, end: 20200703
  3. JINYOULI [Concomitant]
     Indication: PROPHYLAXIS
     Route: 058
     Dates: start: 20200704
  4. 0.9% SODIUM CHLORIDE INJECTION [Suspect]
     Active Substance: SODIUM CHLORIDE
     Dosage: FIRST CHEMOTHERAPY, FAMAXIN 135 MG + NS.100 ML
     Route: 041
     Dates: start: 20200703, end: 20200703
  5. FAMAXIN (EPIRUBICIN HYDROCHLORIDE) [Suspect]
     Active Substance: EPIRUBICIN HYDROCHLORIDE
     Indication: BREAST CANCER FEMALE
     Dosage: FIRST CHEMOTHERAPY, FAMAXIN 135 MG + NS.100 ML
     Route: 041
     Dates: start: 20200703, end: 20200703

REACTIONS (2)
  - Agranulocytosis [Recovered/Resolved]
  - Leukopenia [Recovered/Resolved]

NARRATIVE: CASE EVENT DATE: 20200710
